FAERS Safety Report 24069207 (Version 1)
Quarter: 2024Q3

REPORT INFORMATION
  Report Type: Report from Study
  Country: EC (occurrence: EC)
  Receive Date: 20240710
  Receipt Date: 20240710
  Transmission Date: 20241016
  Serious: No
  Sender: ROCHE
  Company Number: EC-ROCHE-3556129

PATIENT
  Sex: Female

DRUGS (1)
  1. VABYSMO [Suspect]
     Active Substance: FARICIMAB\FARICIMAB-SVOA
     Indication: Diabetic retinal oedema
     Route: 065

REACTIONS (15)
  - Skin injury [Unknown]
  - Dry mouth [Unknown]
  - Stomatitis [Unknown]
  - Vulvovaginal discomfort [Unknown]
  - Gastrointestinal tract irritation [Unknown]
  - Oral discomfort [Unknown]
  - Vulvovaginal burning sensation [Unknown]
  - Anorectal discomfort [Unknown]
  - Oral pain [Unknown]
  - Vulvovaginal pain [Unknown]
  - Proctalgia [Unknown]
  - Hiccups [Unknown]
  - Gastrointestinal pain [Unknown]
  - Oliguria [Unknown]
  - Dysuria [Unknown]
